FAERS Safety Report 15191683 (Version 2)
Quarter: 2018Q3

REPORT INFORMATION
  Report Type: Spontaneous
  Country: DE (occurrence: DE)
  Receive Date: 20180724
  Receipt Date: 20180814
  Transmission Date: 20181010
  Serious: Yes (Other)
  Sender: FDA-Public Use
  Company Number: DE-BAYER-2018-134711

PATIENT
  Age: 27 Year
  Sex: Female

DRUGS (1)
  1. JAYDESS [Suspect]
     Active Substance: LEVONORGESTREL
     Indication: CONTRACEPTION
     Dosage: 14 MCG/24HR, CONT
     Route: 015
     Dates: start: 20150728, end: 20180607

REACTIONS (4)
  - Genital pain [None]
  - Autoimmune thyroiditis [None]
  - Product contamination microbial [None]
  - Gardnerella test positive [None]

NARRATIVE: CASE EVENT DATE: 2017
